FAERS Safety Report 19130676 (Version 1)
Quarter: 2021Q2

REPORT INFORMATION
  Report Type: Spontaneous
  Country: IT (occurrence: IT)
  Receive Date: 20210414
  Receipt Date: 20210414
  Transmission Date: 20210717
  Serious: Yes (Other)
  Sender: FDA-Public Use
  Company Number: IT-B.I. PHARMACEUTICALS,INC./RIDGEFIELD-2021-BI-095815

PATIENT
  Age: 67 Year
  Sex: Female
  Weight: 0 kg

DRUGS (1)
  1. SYNJARDY [Suspect]
     Active Substance: EMPAGLIFLOZIN\METFORMIN HYDROCHLORIDE
     Indication: DIABETES MELLITUS
     Dates: start: 20210308, end: 20210331

REACTIONS (2)
  - Genital infection fungal [Recovering/Resolving]
  - Anal fungal infection [Recovering/Resolving]

NARRATIVE: CASE EVENT DATE: 20210327
